FAERS Safety Report 4557886-X (Version None)
Quarter: 2005Q1

REPORT INFORMATION
  Report Type: 
  Country: None (occurrence: None)
  Receive Date: 20050121
  Receipt Date: 20040113
  Transmission Date: 20050727
  Serious: No
  Sender: FDA-Public Use
  Company Number: US-BRISTOL-MYERS SQUIBB COMPANY-12477006

PATIENT
  Age: 41 Year
  Sex: Male
  Weight: 84 kg

DRUGS (17)
  1. SERZONE [Suspect]
     Indication: DEPRESSION
     Dosage: INITIAL DOSE AT 50 MG, THEN INCREASED TO 250 MG TWICE DAILY FOR THE PAST YEAR. TAKEN HS.
     Route: 048
  2. SYNTHROID [Concomitant]
  3. SEPTRA DS [Concomitant]
  4. ANDROGEL [Concomitant]
  5. BUSPAR [Concomitant]
  6. VITAMIN D [Concomitant]
  7. ALBUTEROL [Concomitant]
     Dosage: INHALER AND NEBULIZER
     Route: 055
  8. DUONEB [Concomitant]
  9. ACTONEL [Concomitant]
  10. BENTYL [Concomitant]
  11. UROCIT-K [Concomitant]
  12. DONNATAL [Concomitant]
  13. FLURAZEPAM [Concomitant]
  14. PREVACID [Concomitant]
  15. VIOXX [Concomitant]
  16. NASACORT AQ [Concomitant]
  17. OXYGEN [Concomitant]
     Dosage: TAKEN AT NIGHT

REACTIONS (2)
  - DYSPEPSIA [None]
  - STOMACH DISCOMFORT [None]
